FAERS Safety Report 7423318-7 (Version None)
Quarter: 2011Q2

REPORT INFORMATION
  Report Type: 
  Country: None (occurrence: None)
  Receive Date: 20110407
  Receipt Date: 20110328
  Transmission Date: 20111010
  Serious: Yes (Life-Threatening, Hospitalization, Other)
  Sender: FDA-Public Use
  Company Number: 2010AC000554

PATIENT
  Age: 76 Year
  Sex: Female

DRUGS (30)
  1. GENTAMICIN [Concomitant]
  2. MAGNESIUM SULFATE [Concomitant]
  3. DIGIBIND [Concomitant]
  4. COREG [Concomitant]
  5. DIGOXIN [Suspect]
     Indication: ATRIAL FIBRILLATION
     Dosage: 0.25 MG; QD; PO
     Route: 048
     Dates: start: 20080102, end: 20080202
  6. ATROPINE [Concomitant]
  7. NICOBID [Concomitant]
  8. SUBLIMAZE PRESERVATIVE FREE [Concomitant]
  9. DARVOCET [Concomitant]
  10. VASOTEC [Concomitant]
  11. DOPAMINE HCL [Concomitant]
  12. PROTONIX [Concomitant]
  13. VITAMIN K TAB [Concomitant]
  14. PERCOCET [Concomitant]
  15. PROMETHAZINE [Concomitant]
  16. GAS-EX [Concomitant]
  17. MYLICON [Concomitant]
  18. VERSED [Concomitant]
  19. ANCEF [Concomitant]
  20. SYNTHROID [Concomitant]
  21. CORDARONE [Concomitant]
  22. K-DUR [Concomitant]
  23. BRETHINE [Concomitant]
  24. DIGIBIND [Concomitant]
  25. ZOFRAN [Concomitant]
  26. COUMADIN [Concomitant]
  27. AMBIEN CR [Concomitant]
  28. MAGNESIUM OXIDE [Concomitant]
  29. ALDACTONE [Concomitant]
  30. DIPRIVAN [Concomitant]

REACTIONS (17)
  - DYSPNOEA [None]
  - HEART RATE IRREGULAR [None]
  - BLOOD SODIUM DECREASED [None]
  - BLOOD ALBUMIN DECREASED [None]
  - ATRIAL FIBRILLATION [None]
  - ASTHENIA [None]
  - LOSS OF CONSCIOUSNESS [None]
  - TOXICITY TO VARIOUS AGENTS [None]
  - NAUSEA [None]
  - ECONOMIC PROBLEM [None]
  - SINUS BRADYCARDIA [None]
  - BLOOD POTASSIUM INCREASED [None]
  - BLOOD CREATINE INCREASED [None]
  - NODAL RHYTHM [None]
  - BLOOD PRESSURE DECREASED [None]
  - CARDIOACTIVE DRUG LEVEL INCREASED [None]
  - BLOOD UREA INCREASED [None]
